FAERS Safety Report 6198347-4 (Version None)
Quarter: 2009Q2

REPORT INFORMATION
  Report Type: 
  Country: None (occurrence: None)
  Receive Date: 20090521
  Receipt Date: 20090511
  Transmission Date: 20091009
  Serious: Yes (Hospitalization, Other)
  Sender: FDA-Public Use
  Company Number: BR-AVENTIS-200915098GDDC

PATIENT
  Age: 46 Year
  Sex: Female

DRUGS (14)
  1. LANTUS [Suspect]
     Route: 058
     Dates: start: 20060101
  2. LANTUS [Suspect]
     Route: 058
  3. LANTUS [Suspect]
     Route: 058
  4. OPTIPEN (INSULIN PUMP) [Suspect]
  5. HUMALOG [Concomitant]
     Dosage: DOSE: ACCORDING TO GLYCEMIA
  6. APRESOLINA [Concomitant]
     Dosage: DOSE QUANTITY: 1
     Route: 048
  7. FERROUS SULFATE TAB [Concomitant]
     Route: 048
  8. FOLIC ACID [Concomitant]
     Route: 048
  9. ATENOLOL [Concomitant]
     Route: 048
  10. ACTONEL [Concomitant]
     Indication: OSTEOPOROSIS
     Route: 048
  11. OS-CAL D [Concomitant]
     Indication: OSTEOPOROSIS
     Route: 048
  12. SIMVASTATIN [Concomitant]
     Route: 048
  13. CIPROFLOXACIN [Concomitant]
     Dosage: DOSE QUANTITY: 1
     Route: 048
  14. LASIX [Concomitant]
     Indication: SWELLING
     Dosage: DOSE QUANTITY: 0.5
     Route: 048

REACTIONS (11)
  - BLOOD PRESSURE SYSTOLIC INCREASED [None]
  - HYPERGLYCAEMIA [None]
  - HYPERHIDROSIS [None]
  - HYPOGLYCAEMIA [None]
  - HYPOGLYCAEMIC UNCONSCIOUSNESS [None]
  - LOSS OF CONSCIOUSNESS [None]
  - MUSCLE RIGIDITY [None]
  - SPEECH DISORDER [None]
  - TREMOR [None]
  - URINARY TRACT INFECTION [None]
  - VOMITING [None]
